FAERS Safety Report 12365778 (Version 2)
Quarter: 2016Q2

REPORT INFORMATION
  Report Type: Spontaneous
  Country: DE (occurrence: DE)
  Receive Date: 20160513
  Receipt Date: 20160602
  Transmission Date: 20160815
  Serious: Yes (Other)
  Sender: FDA-Public Use
  Company Number: DE-BAYER-2016-093044

PATIENT

DRUGS (1)
  1. GADOVIST [Suspect]
     Active Substance: GADOBUTROL

REACTIONS (3)
  - Cough [None]
  - Eyelid oedema [None]
  - Throat tightness [None]

NARRATIVE: CASE EVENT DATE: 20160318
